FAERS Safety Report 9317592 (Version 1)
Quarter: 2013Q2

REPORT INFORMATION
  Report Type: Spontaneous
  Country: US (occurrence: None)
  Receive Date: 20130529
  Receipt Date: 20130529
  Transmission Date: 20140414
  Serious: Yes (Other)
  Sender: FDA-Public Use
  Company Number: None

PATIENT
  Age: 88 Year
  Sex: Female

DRUGS (6)
  1. DONEPEZIL [Suspect]
     Indication: DEMENTIA
     Route: 048
     Dates: start: 20130508
  2. DONEPEZIL [Suspect]
     Indication: AMNESIA
     Route: 048
     Dates: start: 20130508
  3. ZOLPIDEM [Concomitant]
  4. ATENOLOL [Concomitant]
  5. ADVAIR 250/50 [Concomitant]
  6. VENTOLIN [Concomitant]

REACTIONS (2)
  - Hallucination [None]
  - Disorientation [None]
